FAERS Safety Report 18751316 (Version 2)
Quarter: 2024Q1

REPORT INFORMATION
  Report Type: Spontaneous
  Country: US (occurrence: US)
  Receive Date: 20210118
  Receipt Date: 20240203
  Transmission Date: 20240409
  Serious: No
  Sender: FDA-Public Use
  Company Number: US-HORIZON-2021HZN00315

PATIENT

DRUGS (5)
  1. TEPEZZA [Suspect]
     Active Substance: TEPROTUMUMAB-TRBW
     Dosage: UNK
     Dates: start: 20200904, end: 20201218
  2. SPIRIVA [Concomitant]
     Active Substance: TIOTROPIUM BROMIDE MONOHYDRATE
  3. TORSEMIDE [Concomitant]
     Active Substance: TORSEMIDE
  4. NALTREXONE [Concomitant]
     Active Substance: NALTREXONE
  5. BUPROPION [Concomitant]
     Active Substance: BUPROPION
     Dosage: 450 MG, UNK

REACTIONS (4)
  - Muscle spasms [Not Recovered/Not Resolved]
  - Nausea [Not Recovered/Not Resolved]
  - Back disorder [Not Recovered/Not Resolved]
  - Alopecia [Not Recovered/Not Resolved]

NARRATIVE: CASE EVENT DATE: 20200925
